FAERS Safety Report 10922469 (Version 1)
Quarter: 2015Q1

REPORT INFORMATION
  Report Type: Spontaneous
  Country: US (occurrence: None)
  Receive Date: 20150311
  Receipt Date: 20150311
  Transmission Date: 20150721
  Serious: No
  Sender: FDA-Public Use
  Company Number: 1713747-2015-99946

PATIENT
  Age: 38 Year
  Sex: Female
  Weight: 66 kg

DRUGS (26)
  1. EPOGEN [Concomitant]
     Active Substance: ERYTHROPOIETIN
  2. SODIUM BICARBONATE. [Concomitant]
     Active Substance: SODIUM BICARBONATE
  3. HUMALOG [Concomitant]
     Active Substance: INSULIN LISPRO
  4. NATURALYTE [Concomitant]
     Active Substance: ACETIC ACID\SODIUM ACETATE
  5. FMC BLOOD LINES [Concomitant]
     Active Substance: DEVICE
  6. NEURONTIN [Concomitant]
     Active Substance: GABAPENTIN
  7. LANTUS [Concomitant]
     Active Substance: INSULIN GLARGINE
  8. NORVASC [Concomitant]
     Active Substance: AMLODIPINE BESYLATE
  9. COREG [Concomitant]
     Active Substance: CARVEDILOL
  10. BABY ASPIRIN [Concomitant]
     Active Substance: ASPIRIN
  11. NEPHRO-CAPS [Concomitant]
  12. LISINOPRIL. [Concomitant]
     Active Substance: LISINOPRIL
  13. GRANUFLO [Concomitant]
     Active Substance: ACETIC ACID\SODIUM ACETATE
  14. GABAPENTIN. [Concomitant]
     Active Substance: GABAPENTIN
  15. ZEMPLAR [Concomitant]
     Active Substance: PARICALCITOL
  16. NORMAL SALINE [Concomitant]
     Active Substance: SODIUM CHLORIDE
  17. TUMS [Concomitant]
     Active Substance: CALCIUM CARBONATE
  18. 180ONRE OPTIFLUX [Concomitant]
  19. TRAZODONE [Concomitant]
     Active Substance: TRAZODONE HYDROCHLORIDE
  20. ZOLOFT [Concomitant]
     Active Substance: SERTRALINE HYDROCHLORIDE
  21. RENVELA [Concomitant]
     Active Substance: SEVELAMER CARBONATE
  22. LOVENOX [Concomitant]
     Active Substance: ENOXAPARIN SODIUM
  23. COUMADIN [Concomitant]
     Active Substance: WARFARIN SODIUM
  24. 0.9% SODIUM CHLORIDE INJECTION, USP IN MINI-BAG PLUS CONTAINER [Suspect]
     Active Substance: SODIUM CHLORIDE
     Indication: CHRONIC KIDNEY DISEASE
     Dosage: HEMODIALYSIS
     Dates: start: 20130123
  25. FRESENIUS 2008K DIALYSIS MACHINE [Concomitant]
     Active Substance: DEVICE
  26. CALCIFEROL [Concomitant]
     Active Substance: ERGOCALCIFEROL

REACTIONS (4)
  - Malaise [None]
  - Seizure [None]
  - Blood pressure decreased [None]
  - Vomiting [None]

NARRATIVE: CASE EVENT DATE: 20130123
